FAERS Safety Report 18886083 (Version 1)
Quarter: 2021Q1

REPORT INFORMATION
  Report Type: Spontaneous
  Country: FR (occurrence: FR)
  Receive Date: 20210212
  Receipt Date: 20210212
  Transmission Date: 20210420
  Serious: Yes (Hospitalization)
  Sender: FDA-Public Use
  Company Number: FR-009507513-2102FRA003859

PATIENT
  Age: 2 Year
  Sex: Male

DRUGS (4)
  1. MONTELUKAST SODIUM. [Suspect]
     Active Substance: MONTELUKAST SODIUM
     Indication: CHEMOTHERAPY SIDE EFFECT PROPHYLAXIS
     Dosage: 4 MILLIGRAM, ONCE (1 TOTAL)
     Route: 048
     Dates: start: 20210116, end: 20210116
  2. ACETAMINOPHEN. [Suspect]
     Active Substance: ACETAMINOPHEN
     Indication: CHEMOTHERAPY SIDE EFFECT PROPHYLAXIS
     Dosage: 200 MILLIGRAM, ONCE (1 TOTAL)
     Route: 048
     Dates: start: 20210116, end: 20210116
  3. HYDROCORTISONE. [Suspect]
     Active Substance: HYDROCORTISONE
     Indication: CHEMOTHERAPY SIDE EFFECT PROPHYLAXIS
     Dosage: 13 MILLIGRAM, ONCE (1 TOTAL)
     Route: 051
     Dates: start: 20210116, end: 20210116
  4. POLARAMINE [Suspect]
     Active Substance: DEXCHLORPHENIRAMINE MALEATE
     Indication: CHEMOTHERAPY SIDE EFFECT PROPHYLAXIS
     Dosage: STRENGTH: 5 MG/1 ML, SOLUTION INJECTABLE,2.5 MILLIGRAM, ONCE (1 TOTAL)
     Route: 051
     Dates: start: 20210116, end: 20210116

REACTIONS (2)
  - Bradycardia [Recovered/Resolved]
  - Hypertension [Recovered/Resolved]

NARRATIVE: CASE EVENT DATE: 20210116
